FAERS Safety Report 10930167 (Version 2)
Quarter: 2015Q2

REPORT INFORMATION
  Report Type: Spontaneous
  Country: US (occurrence: None)
  Receive Date: 20150317
  Receipt Date: 20150416
  Transmission Date: 20150821
  Serious: Yes (Hospitalization)
  Sender: FDA-Public Use
  Company Number: HYP201503-000023

PATIENT
  Age: 33 Year
  Sex: Male

DRUGS (2)
  1. RAVICTI [Suspect]
     Active Substance: GLYCEROL PHENYLBUTYRATE
     Indication: AMINO ACID METABOLISM DISORDER
     Dates: start: 201404
  2. CITRULLINE [Concomitant]
     Active Substance: CITRULLINE

REACTIONS (5)
  - Cellulitis [None]
  - Decreased appetite [None]
  - Erysipelas [None]
  - Thrombosis in device [None]
  - Ammonia increased [None]

NARRATIVE: CASE EVENT DATE: 20150227
